FAERS Safety Report 18970662 (Version 1)
Quarter: 2021Q1

REPORT INFORMATION
  Report Type: Spontaneous
  Country: US (occurrence: US)
  Receive Date: 20210304
  Receipt Date: 20210304
  Transmission Date: 20210420
  Serious: No
  Sender: FDA-Public Use
  Company Number: US-DSJP-DSU-2021-105538

PATIENT
  Sex: Male

DRUGS (1)
  1. TURALIO [Suspect]
     Active Substance: PEXIDARTINIB HYDROCHLORIDE
     Indication: SYNOVITIS
     Dosage: 400 MG, BID
     Route: 048
     Dates: start: 20210115

REACTIONS (7)
  - Nausea [Recovered/Resolved]
  - Eye swelling [Recovering/Resolving]
  - Vertigo [Recovered/Resolved]
  - Swelling face [Recovering/Resolving]
  - Dizziness [Recovered/Resolved]
  - Periorbital swelling [Not Recovered/Not Resolved]
  - Vomiting [Recovered/Resolved]

NARRATIVE: CASE EVENT DATE: 2021
